FAERS Safety Report 9166422 (Version 2)
Quarter: 2014Q2

REPORT INFORMATION
  Report Type: Report from Study
  Country: CN (occurrence: CN)
  Receive Date: 20130315
  Receipt Date: 20140512
  Transmission Date: 20141212
  Serious: Yes (Death, Other)
  Sender: FDA-Public Use
  Company Number: PHHY2013CN025694

PATIENT
  Age: 26 Year
  Sex: Female

DRUGS (2)
  1. GLIVEC [Suspect]
     Indication: GASTROINTESTINAL STROMAL TUMOUR
     Dosage: 400 MG, PER DAY
     Route: 048
     Dates: start: 20110616
  2. GLIVEC [Suspect]
     Indication: GASTROINTESTINAL NEOPLASM

REACTIONS (3)
  - Death [Fatal]
  - Gastrointestinal stromal tumour [Unknown]
  - Neoplasm recurrence [Unknown]
